FAERS Safety Report 10218969 (Version 1)
Quarter: 2014Q2

REPORT INFORMATION
  Report Type: Spontaneous
  Country: FR (occurrence: None)
  Receive Date: 20140603
  Receipt Date: 20140603
  Transmission Date: 20141212
  Serious: Yes (Hospitalization)
  Sender: FDA-Public Use
  Company Number: 7293268

PATIENT
  Age: 3 Day
  Sex: Male

DRUGS (1)
  1. LEVOTHYROX [Suspect]
     Indication: HYPOTHYROIDISM
     Dosage: PRODUCT TAKEN BY MOTHER

REACTIONS (10)
  - Hypercalcaemia [None]
  - Caesarean section [None]
  - Breech presentation [None]
  - Blood parathyroid hormone decreased [None]
  - Blood phosphorus decreased [None]
  - Drug intolerance [None]
  - Malaise [None]
  - Drug hypersensitivity [None]
  - Maternal drugs affecting foetus [None]
  - Exposure during breast feeding [None]
